FAERS Safety Report 15140933 (Version 1)
Quarter: 2018Q3

REPORT INFORMATION
  Report Type: Spontaneous
  Country: ZA (occurrence: ZA)
  Receive Date: 20180713
  Receipt Date: 20180713
  Transmission Date: 20181010
  Serious: Yes (Hospitalization)
  Sender: FDA-Public Use
  Company Number: ZA-PFIZER INC-2018282639

PATIENT
  Age: 81 Year
  Sex: Male

DRUGS (6)
  1. SPIRACTIN (SPIRONOLACTONE) [Suspect]
     Active Substance: SPIRONOLACTONE
     Dosage: 25 MG, UNK
  2. FELODIPINE HEXAL [Suspect]
     Active Substance: FELODIPINE
     Dosage: 5 MG, UNK
  3. CLOPIWIN [Suspect]
     Active Substance: CLOPIDOGREL BISULFATE
     Dosage: 75 MG, UNK
  4. EPILIZINE [Suspect]
     Active Substance: VALPROATE SODIUM
     Dosage: 300 MG, UNK
  5. ASPAVOR [Suspect]
     Active Substance: ATORVASTATIN
     Dosage: 10 MG, UNK
  6. CARDICOR [Suspect]
     Active Substance: BISOPROLOL
     Dosage: 2.5 MG, UNK

REACTIONS (3)
  - Skull fracture [Unknown]
  - Speech disorder [Unknown]
  - Gait inability [Unknown]
